FAERS Safety Report 7370114-5 (Version None)
Quarter: 2011Q1

REPORT INFORMATION
  Report Type: 
  Country: None (occurrence: None)
  Receive Date: 20110323
  Receipt Date: 20110310
  Transmission Date: 20110831
  Serious: Yes (Other)
  Sender: FDA-Public Use
  Company Number: PHFR2011GB01222

PATIENT
  Sex: Female

DRUGS (3)
  1. CLOZARIL [Suspect]
     Indication: SCHIZOPHRENIA
     Dosage: 400MG
     Route: 048
     Dates: start: 20061212
  2. NICOTINE [Concomitant]
     Dosage: UNK
  3. HYOSCINE HBR HYT [Concomitant]
     Indication: SALIVARY HYPERSECRETION
     Dosage: 600 MCG
     Route: 048

REACTIONS (3)
  - SALIVARY HYPERSECRETION [None]
  - THINKING ABNORMAL [None]
  - ANXIETY [None]
